FAERS Safety Report 22231602 (Version 1)
Quarter: 2023Q2

REPORT INFORMATION
  Report Type: Report from Study
  Country: US (occurrence: US)
  Receive Date: 20230420
  Receipt Date: 20230420
  Transmission Date: 20230722
  Serious: Yes (Other)
  Sender: FDA-Public Use
  Company Number: US-ALNYLAM PHARMACEUTICALS, INC.-ALN-2023-001651

PATIENT

DRUGS (1)
  1. GIVLAARI [Suspect]
     Active Substance: GIVOSIRAN SODIUM
     Indication: Porphyria acute
     Dosage: UNK
     Route: 065
     Dates: start: 20200314

REACTIONS (7)
  - Haematemesis [Unknown]
  - Seizure [Unknown]
  - Product dose omission issue [Unknown]
  - Vomiting [Unknown]
  - White blood cell count decreased [Unknown]
  - Haematochezia [Unknown]
  - Insomnia [Unknown]

NARRATIVE: CASE EVENT DATE: 20230401
